FAERS Safety Report 7084352-2 (Version None)
Quarter: 2010Q4

REPORT INFORMATION
  Report Type: 
  Country: None (occurrence: None)
  Receive Date: 20101104
  Receipt Date: 20101027
  Transmission Date: 20110411
  Serious: Yes (Life-Threatening, Hospitalization, Other)
  Sender: FDA-Public Use
  Company Number: GB-PFIZER INC-2010137267

PATIENT
  Age: 25 Year
  Sex: Female
  Weight: 36.4 kg

DRUGS (10)
  1. METRONIDAZOLE [Suspect]
     Indication: PNEUMONIA ASPIRATION
     Dosage: UNK
     Route: 042
     Dates: start: 20101011, end: 20101018
  2. BACLOFEN [Concomitant]
  3. CLARITHROMYCIN [Concomitant]
  4. CLONAZEPAM [Concomitant]
  5. AMPICILLIN SODIUM/SULBACTAM SODIUM [Concomitant]
  6. DEPO-PROVERA [Concomitant]
  7. LAMOTRIGINE [Concomitant]
  8. PREDNISOLONE [Concomitant]
  9. SALBUTAMOL [Concomitant]
  10. TINZAPARIN SODIUM [Concomitant]

REACTIONS (3)
  - NEUTROPENIA [None]
  - NEUTROPENIC SEPSIS [None]
  - PANCYTOPENIA [None]
